FAERS Safety Report 15718040 (Version 1)
Quarter: 2018Q4

REPORT INFORMATION
  Report Type: Spontaneous
  Country: US (occurrence: US)
  Receive Date: 20181207
  Receipt Date: 20181207
  Transmission Date: 20190205
  Serious: Yes (Hospitalization)
  Sender: FDA-Public Use
  Company Number: None

PATIENT
  Age: 69 Year
  Sex: Male
  Weight: 99.79 kg

DRUGS (5)
  1. IRINOTECAN [Suspect]
     Active Substance: IRINOTECAN
     Dosage: ?          OTHER FREQUENCY:Q 2 WEEKS;?
  2. OXALIPLATIN. [Suspect]
     Active Substance: OXALIPLATIN
     Dosage: ?          OTHER FREQUENCY:Q 2 WEEKS ;?
  3. HERCEPTIN [Suspect]
     Active Substance: TRASTUZUMAB
     Dosage: ?          OTHER FREQUENCY:Q 2 WEEKS ;?
     Route: 042
  4. LEUCOVORIN. [Suspect]
     Active Substance: LEUCOVORIN
  5. 5-FU, [Suspect]
     Active Substance: FLUOROURACIL
     Indication: OESOPHAGEAL CARCINOMA
     Dosage: ?          OTHER FREQUENCY:Q 2 WEEKS ;?
     Route: 042
     Dates: start: 20180516

REACTIONS (1)
  - Oesophageal stenosis [None]

NARRATIVE: CASE EVENT DATE: 20181125
